FAERS Safety Report 6733094-9 (Version None)
Quarter: 2010Q2

REPORT INFORMATION
  Report Type: 
  Country: None (occurrence: None)
  Receive Date: 20100518
  Receipt Date: 20100504
  Transmission Date: 20101027
  Serious: Yes (Other)
  Sender: FDA-Public Use
  Company Number: CL-116-2010

PATIENT
  Age: 70 Year
  Sex: Male

DRUGS (7)
  1. CIPROFLOXACIN [Suspect]
     Indication: CELLULITIS
     Dosage: 750 MG BD ORAL ROUTE
     Route: 048
  2. METRONIDAZOLE CONT [Suspect]
     Indication: CELLULITIS
     Dosage: 400 MG TDS ORAL ROUTE
     Route: 048
  3. ASPIRIN [Suspect]
     Indication: PULMONARY EMBOLISM
     Dosage: 300 MG OD ORAL
     Route: 048
  4. CLOPIDOGREL [Suspect]
     Indication: PULMONARY EMBOLISM
     Dosage: 300 MG OD ORAL
     Route: 048
  5. ERYTHROMYCIN UNK [Suspect]
     Indication: CELLULITIS
     Dosage: 250 MG QDS ORAL ROUTE
     Route: 048
  6. MEROPENEM [Suspect]
     Indication: CELLULITIS
     Dosage: 2 G BD INTRAVENOUSLY
     Route: 042
  7. TEICOPLANIN UNK [Suspect]
     Indication: CELLULITIS
     Dosage: 400 MG OD INTRAMUSCULAR
     Route: 030

REACTIONS (10)
  - DECREASED APPETITE [None]
  - DRUG INEFFECTIVE [None]
  - DRUG INTERACTION [None]
  - EYE PAIN [None]
  - HEADACHE [None]
  - HYPHAEMA [None]
  - INTERNATIONAL NORMALISED RATIO INCREASED [None]
  - NAUSEA [None]
  - PYREXIA [None]
  - VISUAL ACUITY REDUCED [None]
